FAERS Safety Report 20722085 (Version 1)
Quarter: 2022Q2

REPORT INFORMATION
  Report Type: Spontaneous
  Country: US (occurrence: None)
  Receive Date: 20220418
  Receipt Date: 20220418
  Transmission Date: 20220721
  Serious: No
  Sender: FDA-Public Use
  Company Number: None

PATIENT
  Age: 58 Year
  Sex: Male
  Weight: 102 kg

DRUGS (1)
  1. SULFUR HEXAFLUORIDE [Suspect]
     Active Substance: SULFUR HEXAFLUORIDE
     Indication: Scan with contrast
     Dosage: FREQUENCY : ONCE;?
     Route: 040
     Dates: start: 20220324, end: 20220324

REACTIONS (4)
  - Injection site pain [None]
  - Abdominal pain upper [None]
  - Seizure [None]
  - Dyskinesia [None]

NARRATIVE: CASE EVENT DATE: 20220324
